FAERS Safety Report 6793232-9 (Version None)
Quarter: 2010Q2

REPORT INFORMATION
  Report Type: 
  Country: None (occurrence: None)
  Receive Date: 20100624
  Receipt Date: 20090901
  Transmission Date: 20101027
  Serious: Yes (Other)
  Sender: FDA-Public Use
  Company Number: US-MYLANLABS-2009S1015640

PATIENT
  Age: 39 Year
  Sex: Female

DRUGS (8)
  1. CLOZAPINE [Suspect]
     Indication: BIPOLAR DISORDER
     Route: 048
     Dates: end: 20090828
  2. CLOZAPINE [Suspect]
     Route: 048
     Dates: end: 20090828
  3. SEROQUEL [Concomitant]
     Route: 048
  4. SOMA [Concomitant]
     Route: 048
  5. OSCAL D /01746701/ [Concomitant]
     Route: 048
  6. DEPAKOTE [Concomitant]
     Route: 048
  7. LEVOTHYROXINE [Concomitant]
     Route: 048
  8. BENZTROPINE MESYLATE [Concomitant]
     Route: 048

REACTIONS (1)
  - GRANULOCYTOPENIA [None]
